FAERS Safety Report 4705861-4 (Version None)
Quarter: 2005Q2

REPORT INFORMATION
  Report Type: 
  Country: None (occurrence: None)
  Receive Date: 20050629
  Receipt Date: 20050309
  Transmission Date: 20051028
  Serious: Yes (Hospitalization)
  Sender: FDA-Public Use
  Company Number: 05P-163-0293303-00

PATIENT
  Age: 67 Year
  Sex: Female
  Weight: 83.4619 kg

DRUGS (14)
  1. HUMIRA [Suspect]
     Indication: RHEUMATOID ARTHRITIS
     Dosage: 40 MG, 1 IN 2 WK, SUBCUTANEOUS
     Route: 058
     Dates: start: 20030415
  2. LEVOTHYROXINE SODIUM [Concomitant]
  3. CLOPIDOGREL BISULFATE [Concomitant]
  4. RAMIPRIL [Concomitant]
  5. DYAZIDE [Concomitant]
  6. PREDNISONE TAB [Concomitant]
  7. ATENOLOL [Concomitant]
  8. PANTOPRAZOLE [Concomitant]
  9. ATORVASTATIN CALCIUM [Concomitant]
  10. CALCIUM GLUCONATE [Concomitant]
  11. CYCLOBENZAPRINE HYDROCHLORIDE [Concomitant]
  12. PROPACET 100 [Concomitant]
  13. COMBIVENT [Concomitant]
  14. TRIAMCINOLONE ACETONIDE [Concomitant]

REACTIONS (1)
  - MYOCARDIAL INFARCTION [None]
